FAERS Safety Report 4971347-5 (Version None)
Quarter: 2006Q2

REPORT INFORMATION
  Report Type: 
  Country: None (occurrence: None)
  Receive Date: 20060413
  Receipt Date: 20060331
  Transmission Date: 20061013
  Serious: Yes (Other)
  Sender: FDA-Public Use
  Company Number: 2006GB00546

PATIENT
  Age: 48 Year
  Sex: Female
  Weight: 92.6 kg

DRUGS (5)
  1. CRESTOR [Suspect]
     Indication: HYPERCHOLESTEROLAEMIA
     Route: 048
     Dates: start: 20060317, end: 20060323
  2. LEVEMIR [Concomitant]
     Indication: DIABETES MELLITUS NON-INSULIN-DEPENDENT
     Route: 058
     Dates: start: 20041101
  3. NOVORAPID [Concomitant]
     Indication: DIABETES MELLITUS NON-INSULIN-DEPENDENT
     Route: 058
     Dates: start: 20041101
  4. ESCITALOPRAM OXALATE [Concomitant]
     Indication: DEPRESSION
     Route: 048
     Dates: start: 20060201
  5. ASPIRIN [Concomitant]
     Indication: DIABETES MELLITUS NON-INSULIN-DEPENDENT
     Route: 048
     Dates: start: 20060316

REACTIONS (2)
  - EYE PAIN [None]
  - SWELLING FACE [None]
